FAERS Safety Report 15175704 (Version 1)
Quarter: 2018Q3

REPORT INFORMATION
  Report Type: Report from Study
  Country: US (occurrence: US)
  Receive Date: 20180720
  Receipt Date: 20180720
  Transmission Date: 20181010
  Serious: Yes (Hospitalization, Other)
  Sender: FDA-Public Use
  Company Number: US-ACTELION-A-NJ2017-164263

PATIENT
  Age: 84 Year
  Sex: Female
  Weight: 64.85 kg

DRUGS (4)
  1. ADEMPAS [Concomitant]
     Active Substance: RIOCIGUAT
  2. TRACLEER [Suspect]
     Active Substance: BOSENTAN
     Indication: PULMONARY HYPERTENSION
     Dosage: 125 MG, BID
     Route: 048
  3. TYVASO [Suspect]
     Active Substance: TREPROSTINIL
     Indication: PRODUCT USED FOR UNKNOWN INDICATION
     Route: 065
  4. COUMADIN [Concomitant]
     Active Substance: WARFARIN SODIUM

REACTIONS (8)
  - Internal haemorrhage [Unknown]
  - Cough [Unknown]
  - Oral herpes [Unknown]
  - Blood pressure diastolic decreased [Unknown]
  - Transfusion [Unknown]
  - Chapped lips [Unknown]
  - Anaemia [Unknown]
  - Fatigue [Unknown]
